FAERS Safety Report 6867567-5 (Version None)
Quarter: 2010Q3

REPORT INFORMATION
  Report Type: 
  Country: None (occurrence: None)
  Receive Date: 20100722
  Receipt Date: 20100722
  Transmission Date: 20110219
  Serious: Yes (Other)
  Sender: FDA-Public Use
  Company Number: None

PATIENT
  Age: 7 Year
  Sex: Male
  Weight: 27.2158 kg

DRUGS (3)
  1. INTUNIV [Suspect]
     Indication: ATTENTION DEFICIT/HYPERACTIVITY DISORDER
     Dosage: 1 TABLET DAILY AM PO
     Route: 048
     Dates: start: 20100421, end: 20100512
  2. INTUNIV [Suspect]
     Indication: OPPOSITIONAL DEFIANT DISORDER
     Dosage: 1 TABLET DAILY AM PO
     Route: 048
     Dates: start: 20100421, end: 20100512
  3. INTUNIV [Suspect]
     Dosage: 1 TABLET DAILY AM PO
     Route: 048
     Dates: start: 20100513, end: 20100715

REACTIONS (3)
  - BLOOD PRESSURE DIASTOLIC DECREASED [None]
  - HEART RATE IRREGULAR [None]
  - SINUS BRADYCARDIA [None]
